FAERS Safety Report 6337357-0 (Version None)
Quarter: 2009Q3

REPORT INFORMATION
  Report Type: 
  Country: None (occurrence: None)
  Receive Date: 20090902
  Receipt Date: 20090828
  Transmission Date: 20100115
  Serious: Yes (Other)
  Sender: FDA-Public Use
  Company Number: FR-WYE-G04328209

PATIENT
  Sex: Male

DRUGS (2)
  1. TORISEL [Suspect]
     Indication: RENAL CANCER METASTATIC
     Route: 042
     Dates: start: 20090814, end: 20090821
  2. ARIXTRA [Suspect]
     Route: 042
     Dates: start: 20090814

REACTIONS (4)
  - PLATELET COUNT DECREASED [None]
  - PURPURA [None]
  - SKIN NECROSIS [None]
  - VASCULITIS [None]
